FAERS Safety Report 12470524 (Version 1)
Quarter: 2016Q2

REPORT INFORMATION
  Report Type: Spontaneous
  Country: US (occurrence: US)
  Receive Date: 20160616
  Receipt Date: 20160616
  Transmission Date: 20160815
  Serious: Yes (Other)
  Sender: FDA-Public Use
  Company Number: US-AMGEN-USASP2016075347

PATIENT
  Age: 53 Year
  Sex: Male

DRUGS (3)
  1. OMEPRAZOLE. [Concomitant]
     Active Substance: OMEPRAZOLE
     Indication: ABDOMINAL DISCOMFORT
     Dosage: UNK
     Route: 065
  2. ENBREL [Suspect]
     Active Substance: ETANERCEPT
     Indication: RHEUMATOID ARTHRITIS
     Dosage: 50 MG, QWK
     Route: 065
  3. PREDNISONE. [Concomitant]
     Active Substance: PREDNISONE
     Dosage: UNK, 5 MG EVERY AM AND 10 MG EVERY PM
     Route: 065

REACTIONS (7)
  - Feeling hot [Unknown]
  - Rheumatoid arthritis [Not Recovered/Not Resolved]
  - Rash erythematous [Unknown]
  - Drug effect delayed [Unknown]
  - Muscle spasms [Unknown]
  - Rash pruritic [Unknown]
  - Alcohol use [Unknown]

NARRATIVE: CASE EVENT DATE: 20160609
